FAERS Safety Report 5600679-2 (Version None)
Quarter: 2008Q1

REPORT INFORMATION
  Report Type: 
  Country: None (occurrence: None)
  Receive Date: 20080123
  Receipt Date: 20080111
  Transmission Date: 20080703
  Serious: Yes (Other)
  Sender: FDA-Public Use
  Company Number: US-PFIZER INC-2008001450

PATIENT
  Sex: Female
  Weight: 72.6 kg

DRUGS (9)
  1. LYRICA [Suspect]
     Indication: PAIN
  2. LYRICA [Suspect]
     Indication: NEUROPATHY PERIPHERAL
  3. ALL OTHER THERAPEUTIC PRODUCTS [Concomitant]
  4. TOPAMAX [Concomitant]
  5. LOPRESSOR [Concomitant]
  6. FLEXERIL [Concomitant]
  7. PROCARDIA [Concomitant]
  8. VALIUM [Concomitant]
  9. ZOCOR [Concomitant]

REACTIONS (14)
  - ABASIA [None]
  - AMNESIA [None]
  - DIZZINESS [None]
  - DRUG INEFFECTIVE [None]
  - DRY MOUTH [None]
  - FEELING ABNORMAL [None]
  - GAIT DISTURBANCE [None]
  - HEADACHE [None]
  - HYPOTENSION [None]
  - JOINT SWELLING [None]
  - MIGRAINE [None]
  - PAIN [None]
  - POLYNEUROPATHY [None]
  - TONGUE DISORDER [None]
